FAERS Safety Report 9004415 (Version 1)
Quarter: 2013Q1

REPORT INFORMATION
  Report Type: Spontaneous
  Country: US (occurrence: None)
  Receive Date: 20130103
  Receipt Date: 20130103
  Transmission Date: 20140127
  Serious: Yes (Disabling)
  Sender: FDA-Public Use
  Company Number: None

PATIENT
  Age: 63 Year
  Sex: Female
  Weight: 72.58 kg

DRUGS (1)
  1. LEVAQUIN [Suspect]
     Indication: SINUSITIS
     Route: 041
     Dates: start: 20081023, end: 20081104

REACTIONS (9)
  - Malaise [None]
  - Nervous system disorder [None]
  - Neuropathy peripheral [None]
  - Visual impairment [None]
  - Muscle disorder [None]
  - Tendonitis [None]
  - Nervous system disorder [None]
  - Quality of life decreased [None]
  - Loss of employment [None]
